FAERS Safety Report 10991334 (Version 1)
Quarter: 2015Q2

REPORT INFORMATION
  Report Type: Spontaneous
  Country: US (occurrence: US)
  Receive Date: 20150406
  Receipt Date: 20150406
  Transmission Date: 20150821
  Serious: Yes (Hospitalization, Other)
  Sender: FDA-Public Use
  Company Number: US-JAZZ-2015-US-005001

PATIENT
  Age: 54 Year
  Sex: Male

DRUGS (7)
  1. LORAZEPAM. [Concomitant]
     Active Substance: LORAZEPAM
  2. ZIPRASIDONE [Concomitant]
     Active Substance: ZIPRASIDONE
  3. SERTRALINE HCL [Concomitant]
     Active Substance: SERTRALINE HYDROCHLORIDE
  4. EPINEPHRINE. [Interacting]
     Active Substance: EPINEPHRINE
     Dosage: 0.1 ?G/KG, UNK
  5. CLOZAPINE. [Suspect]
     Active Substance: CLOZAPINE
     Indication: SCHIZOPHRENIA
     Dosage: UNK MG, UNK
     Route: 048
  6. EPINEPHRINE. [Interacting]
     Active Substance: EPINEPHRINE
     Dosage: 0.15 ?G/KG, UNK
  7. CLONAZEPAM. [Concomitant]
     Active Substance: CLONAZEPAM

REACTIONS (3)
  - Mean arterial pressure decreased [Recovering/Resolving]
  - Drug interaction [Recovering/Resolving]
  - Tachycardia [Recovering/Resolving]
